FAERS Safety Report 7224950-6 (Version None)
Quarter: 2011Q1

REPORT INFORMATION
  Report Type: 
  Country: None (occurrence: None)
  Receive Date: 20110113
  Receipt Date: 20110106
  Transmission Date: 20110831
  Serious: Yes (Death)
  Sender: FDA-Public Use
  Company Number: US-GILEAD-2010-0033753

PATIENT
  Sex: Male

DRUGS (11)
  1. PLAQUENIL [Concomitant]
  2. PROTONIX [Concomitant]
  3. POTASSIUM [Concomitant]
  4. LISINOPRIL [Concomitant]
  5. ASPIRIN [Concomitant]
  6. LIPITOR [Concomitant]
  7. LETAIRIS [Suspect]
     Indication: COR PULMONALE CHRONIC
     Route: 048
     Dates: start: 20090511, end: 20090820
  8. PREDNISONE [Concomitant]
  9. ALLOPURINOL [Concomitant]
  10. COLCHICINE [Concomitant]
  11. VIAGRA [Concomitant]

REACTIONS (5)
  - WEIGHT DECREASED [None]
  - DEATH [None]
  - OEDEMA PERIPHERAL [None]
  - DYSPNOEA [None]
  - RASH [None]
